FAERS Safety Report 12461417 (Version 2)
Quarter: 2016Q2

REPORT INFORMATION
  Report Type: Report from Study
  Country: US (occurrence: US)
  Receive Date: 20160613
  Receipt Date: 20160622
  Transmission Date: 20160815
  Serious: Yes (Hospitalization)
  Sender: FDA-Public Use
  Company Number: US-BIOGEN-2016BI00250041

PATIENT
  Age: 50 Year
  Sex: Male

DRUGS (1)
  1. TYSABRI [Suspect]
     Active Substance: NATALIZUMAB
     Indication: MULTIPLE SCLEROSIS
     Dosage: INFUSED OVER ONE HOUR
     Route: 042
     Dates: start: 20130703, end: 20160321

REACTIONS (11)
  - Coma [Recovered/Resolved]
  - Memory impairment [Not Recovered/Not Resolved]
  - Spinal operation [Unknown]
  - Postoperative wound infection [Unknown]
  - Frustration tolerance decreased [Not Recovered/Not Resolved]
  - Cerebrospinal fluid leakage [Unknown]
  - Back pain [Not Recovered/Not Resolved]
  - Impaired healing [Not Recovered/Not Resolved]
  - Abasia [Not Recovered/Not Resolved]
  - Pain [Not Recovered/Not Resolved]
  - Meningitis [Unknown]

NARRATIVE: CASE EVENT DATE: 201512
